FAERS Safety Report 6194946-4 (Version None)
Quarter: 2009Q2

REPORT INFORMATION
  Report Type: 
  Country: None (occurrence: None)
  Receive Date: 20090515
  Receipt Date: 20090507
  Transmission Date: 20091009
  Serious: Yes (Hospitalization)
  Sender: FDA-Public Use
  Company Number: 2009SP009965

PATIENT
  Age: 30 Year
  Sex: Female

DRUGS (2)
  1. NOXAFIL [Suspect]
     Indication: ANTIFUNGAL TREATMENT
  2. AMBISOME [Suspect]
     Indication: ANTIFUNGAL TREATMENT

REACTIONS (3)
  - BRADYCARDIA [None]
  - CARDIAC DISORDER [None]
  - HYPOKALAEMIA [None]
